APPROVED DRUG PRODUCT: CLARITIN REDITABS
Active Ingredient: LORATADINE
Strength: 10MG
Dosage Form/Route: TABLET, ORALLY DISINTEGRATING;ORAL
Application: N020704 | Product #002
Applicant: BAYER HEALTHCARE LLC
Approved: Nov 27, 2002 | RLD: Yes | RS: Yes | Type: OTC